FAERS Safety Report 9251256 (Version 1)
Quarter: 2013Q2

REPORT INFORMATION
  Report Type: Report from Study
  Country: US (occurrence: US)
  Receive Date: 20130424
  Receipt Date: 20130424
  Transmission Date: 20140414
  Serious: Yes (Hospitalization)
  Sender: FDA-Public Use
  Company Number: 2013SP001117

PATIENT
  Age: 34 Year
  Sex: Male
  Weight: 69 kg

DRUGS (3)
  1. SM-13496 [Suspect]
     Indication: SCHIZOPHRENIA
     Route: 048
  2. ATIVAN [Concomitant]
     Indication: AGITATION
     Route: 048
     Dates: start: 20121004
  3. PROZAC [Concomitant]
     Indication: DEPRESSION
     Route: 048
     Dates: start: 20120827

REACTIONS (2)
  - Drug ineffective [None]
  - Schizophrenia [Recovered/Resolved]
